FAERS Safety Report 8520607-X (Version None)
Quarter: 2012Q3

REPORT INFORMATION
  Report Type: 
  Country: None (occurrence: None)
  Receive Date: 20120719
  Receipt Date: 20120716
  Transmission Date: 20120928
  Serious: Yes (Life-Threatening, Hospitalization, Other)
  Sender: FDA-Public Use
  Company Number: US-PFIZER INC-2012164594

PATIENT
  Sex: Male
  Weight: 107 kg

DRUGS (3)
  1. LIPITOR [Suspect]
     Indication: CARDIOVASCULAR DISORDER
     Dosage: 5 MG, DAILY
  2. LIPITOR [Suspect]
     Dosage: 10 MG, DAILY
  3. LIPITOR [Suspect]
     Dosage: 40 MG, DAILY

REACTIONS (9)
  - HYPERSENSITIVITY [None]
  - AMNESIA [None]
  - CARDIAC ARREST [None]
  - CEREBROVASCULAR ACCIDENT [None]
  - VASCULAR OCCLUSION [None]
  - HEART RATE IRREGULAR [None]
  - CARDIAC DISORDER [None]
  - VISION BLURRED [None]
  - CHEST PAIN [None]
